FAERS Safety Report 17226046 (Version 1)
Quarter: 2020Q1

REPORT INFORMATION
  Report Type: Spontaneous
  Country: SE (occurrence: SE)
  Receive Date: 20200102
  Receipt Date: 20200102
  Transmission Date: 20200409
  Serious: Yes (Hospitalization)
  Sender: FDA-Public Use
  Company Number: SE-MYLANLABS-2019M1131664

PATIENT
  Age: 19 Year
  Sex: Female

DRUGS (1)
  1. LERGIGAN FORTE 50 MG FILMDRAGERADE TABLETTER [Suspect]
     Active Substance: PROMETHAZINE HYDROCHLORIDE
     Indication: PRODUCT USED FOR UNKNOWN INDICATION
     Dosage: 1 DOSAGE FORM, TOTAL 11 ST
     Route: 048
     Dates: start: 20180726, end: 20180726

REACTIONS (2)
  - Disorganised speech [Unknown]
  - Overdose [Unknown]

NARRATIVE: CASE EVENT DATE: 20180726
